FAERS Safety Report 21366634 (Version 2)
Quarter: 2022Q3

REPORT INFORMATION
  Report Type: Report from Study
  Country: FR (occurrence: FR)
  Receive Date: 20220923
  Receipt Date: 20220929
  Transmission Date: 20221027
  Serious: Yes (Other)
  Sender: FDA-Public Use
  Company Number: FR-ABBVIE-4129107

PATIENT
  Sex: Male
  Weight: 80.3 kg

DRUGS (11)
  1. UPADACITINIB [Suspect]
     Active Substance: UPADACITINIB
     Indication: Rheumatoid arthritis
     Dosage: 15 MILLIGRAM
     Route: 048
     Dates: start: 20210810, end: 20220328
  2. UPADACITINIB [Suspect]
     Active Substance: UPADACITINIB
     Indication: Rheumatoid arthritis
     Dosage: 15 MILLIGRAM
     Route: 048
     Dates: start: 20220406
  3. VALACYCLOVIR HYDROCHLORIDE [Concomitant]
     Active Substance: VALACYCLOVIR HYDROCHLORIDE
     Indication: Herpes zoster
     Dosage: 500 MILLIGRAM
     Route: 048
     Dates: start: 20211222, end: 20211229
  4. INDAPAMIDE [Concomitant]
     Active Substance: INDAPAMIDE
     Indication: Hypertension
     Dosage: 1.5 MILLIGRAM
     Route: 048
     Dates: start: 20180101
  5. PREDNISONE [Concomitant]
     Active Substance: PREDNISONE
     Indication: Rheumatoid arthritis
     Dosage: 10 MILLIGRAM
     Route: 048
     Dates: start: 20211019, end: 20220107
  6. PREDNISONE [Concomitant]
     Active Substance: PREDNISONE
     Indication: Rheumatoid arthritis
     Dosage: 30 MILLIGRAM
     Route: 048
     Dates: start: 20210608, end: 20211018
  7. ASPIRIN DL-LYSINE [Concomitant]
     Active Substance: ASPIRIN DL-LYSINE
     Indication: Cerebrovascular accident
     Dosage: 100 MILLIGRAM
     Route: 048
     Dates: start: 20180901
  8. Enalapril/lercanidipin [Concomitant]
     Indication: Hypertension
     Dosage: 20/20 MG
     Route: 048
     Dates: start: 20180101
  9. METHOTREXATE [Concomitant]
     Active Substance: METHOTREXATE
     Indication: Rheumatoid arthritis
     Dates: start: 201201, end: 202104
  10. METHOTREXATE [Concomitant]
     Active Substance: METHOTREXATE
     Indication: Rheumatoid arthritis
     Route: 058
     Dates: start: 20210810
  11. ROSUVASTATIN [Concomitant]
     Active Substance: ROSUVASTATIN
     Indication: Dyslipidaemia
     Dosage: 20 MILLIGRAM
     Route: 048
     Dates: start: 20180901

REACTIONS (1)
  - Umbilical hernia [Recovered/Resolved]

NARRATIVE: CASE EVENT DATE: 20220404
